FAERS Safety Report 7930492-2 (Version None)
Quarter: 2011Q4

REPORT INFORMATION
  Report Type: 
  Country: None (occurrence: None)
  Receive Date: 20111121
  Receipt Date: 20101214
  Transmission Date: 20120403
  Serious: Yes (Hospitalization, Other)
  Sender: FDA-Public Use
  Company Number: PHHY2011TW21037

PATIENT
  Sex: Male

DRUGS (1)
  1. GLEEVEC [Suspect]
     Indication: CHRONIC MYELOID LEUKAEMIA
     Dosage: 300 MG, DAILY
     Route: 048

REACTIONS (11)
  - LIVER DISORDER [None]
  - DEPRESSION [None]
  - VOMITING [None]
  - DIARRHOEA [None]
  - DECREASED APPETITE [None]
  - OEDEMA PERIPHERAL [None]
  - HEPATITIS [None]
  - EYE SWELLING [None]
  - SUICIDAL IDEATION [None]
  - HEPATIC CIRRHOSIS [None]
  - ASCITES [None]
